FAERS Safety Report 10102937 (Version 2)
Quarter: 2014Q2

REPORT INFORMATION
  Report Type: Spontaneous
  Country: US (occurrence: US)
  Receive Date: 20140424
  Receipt Date: 20140620
  Transmission Date: 20141212
  Serious: No
  Sender: FDA-Public Use
  Company Number: US-BRISTOL-MYERS SQUIBB COMPANY-19976174

PATIENT
  Age: 80 Year
  Sex: Male
  Weight: 61.68 kg

DRUGS (10)
  1. ELIQUIS [Suspect]
     Dosage: DOSE REDUCED TO 2.5 BID
     Dates: start: 20131231
  2. LOTRONEX [Concomitant]
     Dosage: IBS.
  3. SYNTHROID [Concomitant]
  4. ULORIC [Concomitant]
  5. TIMOPTIC DROPS [Concomitant]
     Dosage: EYE DROPS 0.5%?1 GTT EACH EYE DAILY
  6. TOPROL XL [Concomitant]
  7. BENICAR [Concomitant]
  8. FLOMAX [Concomitant]
  9. ATORVASTATIN [Concomitant]
  10. FLONASE [Concomitant]

REACTIONS (2)
  - Epistaxis [Recovered/Resolved]
  - Increased tendency to bruise [Unknown]
